FAERS Safety Report 6868726-8 (Version None)
Quarter: 2010Q3

REPORT INFORMATION
  Report Type: 
  Country: None (occurrence: None)
  Receive Date: 20100721
  Receipt Date: 20100721
  Transmission Date: 20110219
  Serious: Yes (Hospitalization)
  Sender: FDA-Public Use
  Company Number: None

PATIENT
  Age: 32 Year
  Sex: Male
  Weight: 94.3482 kg

DRUGS (1)
  1. PROMETHAZINE [Suspect]

REACTIONS (7)
  - ACTIVITIES OF DAILY LIVING IMPAIRED [None]
  - DIZZINESS [None]
  - EYELID OEDEMA [None]
  - FEELING DRUNK [None]
  - HYPERSENSITIVITY [None]
  - OXYGEN CONSUMPTION DECREASED [None]
  - PARAESTHESIA [None]
